FAERS Safety Report 5349598-X (Version None)
Quarter: 2007Q2

REPORT INFORMATION
  Report Type: 
  Country: None (occurrence: None)
  Receive Date: 20070607
  Receipt Date: 20070531
  Transmission Date: 20071010
  Serious: Yes (Other)
  Sender: FDA-Public Use
  Company Number: US-JNJFOC-20070600576

PATIENT
  Sex: Female
  Weight: 106.14 kg

DRUGS (15)
  1. DURAGESIC-100 [Suspect]
     Route: 062
  2. DURAGESIC-100 [Suspect]
     Indication: PAIN
     Route: 062
  3. CALCIUM CARBONATE [Concomitant]
     Route: 048
  4. ALLEGRA [Concomitant]
     Indication: MULTIPLE ALLERGIES
     Route: 048
  5. VYTORIN [Concomitant]
     Indication: DEPRESSION
     Dosage: 10-20/ONE AT NIGHT
     Route: 048
  6. WELLBUTRIN XL [Concomitant]
     Indication: STRESS
     Dosage: ONE IN THE MORNING
     Route: 048
  7. UNSPECIFIED MEDICATION [Concomitant]
     Indication: BLOOD POTASSIUM DECREASED
     Route: 048
  8. LASIX [Concomitant]
     Indication: FLUID RETENTION
     Route: 048
  9. MIDRIN [Concomitant]
     Indication: HEADACHE
     Dosage: TWO AS NEEDED UPON HEADACHE ONSET
     Route: 048
  10. RELPEX [Concomitant]
     Indication: MIGRAINE
     Dosage: AS NEEDED
     Route: 048
  11. TOPAMAX [Concomitant]
     Indication: MIGRAINE
     Route: 048
  12. NEURONTIN [Concomitant]
     Indication: FIBROMYALGIA
     Route: 048
  13. CELEBREX [Concomitant]
     Indication: PAIN
     Route: 048
  14. LORAZEPAM [Concomitant]
     Indication: ANXIETY
     Route: 048
  15. CYMBALTA [Concomitant]
     Indication: STRESS
     Route: 048

REACTIONS (6)
  - CRYING [None]
  - FLUID RETENTION [None]
  - GASTROOESOPHAGEAL REFLUX DISEASE [None]
  - HIATUS HERNIA [None]
  - HYPERSENSITIVITY [None]
  - WRONG TECHNIQUE IN DRUG USAGE PROCESS [None]
